FAERS Safety Report 26151932 (Version 1)
Quarter: 2025Q4

REPORT INFORMATION
  Report Type: Spontaneous
  Country: US (occurrence: US)
  Receive Date: 20251214
  Receipt Date: 20251214
  Transmission Date: 20260118
  Serious: Yes (Other)
  Sender: DIFGEN PHARMACEUTICALS LLC
  Company Number: US-Difgen-012315

PATIENT

DRUGS (1)
  1. BUPRENORPHINE\NALOXONE [Suspect]
     Active Substance: BUPRENORPHINE\NALOXONE
     Indication: Product used for unknown indication
     Dosage: 4 MG/1 MG
     Route: 060

REACTIONS (8)
  - Apnoea [Unknown]
  - Pain in extremity [Unknown]
  - Salivary hypersecretion [Unknown]
  - Malaise [Unknown]
  - Discomfort [Unknown]
  - Gait disturbance [Unknown]
  - Product physical issue [Unknown]
  - Pain [Unknown]
